FAERS Safety Report 13072760 (Version 1)
Quarter: 2016Q4

REPORT INFORMATION
  Report Type: Spontaneous
  Country: US (occurrence: US)
  Receive Date: 20161229
  Receipt Date: 20161229
  Transmission Date: 20170207
  Serious: Yes (Hospitalization)
  Sender: FDA-Public Use
  Company Number: US-SA-2016SA096119

PATIENT
  Age: 66 Year
  Sex: Female
  Weight: 100.9 kg

DRUGS (29)
  1. VITAMIN C [Concomitant]
     Active Substance: ASCORBIC ACID
     Indication: SUPPLEMENTATION THERAPY
     Dosage: 500 MG, DAILY 5/WEEK
     Route: 048
     Dates: start: 2013
  2. HYZAAR [Concomitant]
     Active Substance: HYDROCHLOROTHIAZIDE\LOSARTAN POTASSIUM
     Indication: HYPERTENSION
     Dosage: 50/12.5 MG (50 MG,QD)
     Route: 048
     Dates: start: 2013
  3. DECADRON [Concomitant]
     Active Substance: DEXAMETHASONE
     Indication: PREMEDICATION
     Route: 042
     Dates: start: 20151203, end: 20160303
  4. SALMETEROL [Concomitant]
     Active Substance: SALMETEROL
  5. ASPIRIN. [Concomitant]
     Active Substance: ASPIRIN
     Indication: HYPERTENSION
     Dosage: DAILY 5 /WEEK
     Dates: start: 20130320
  6. FLEXERIL [Concomitant]
     Active Substance: CYCLOBENZAPRINE HYDROCHLORIDE
     Indication: PROPHYLAXIS
     Dosage: 30 MG (10MG, Q8H)
     Route: 048
     Dates: start: 20150806
  7. ALBUTEROL. [Concomitant]
     Active Substance: ALBUTEROL
     Indication: CHRONIC OBSTRUCTIVE PULMONARY DISEASE
     Dosage: (2 PUFF (2 DOSAGE FORMS, Q6H)
     Route: 055
     Dates: start: 20150705
  8. TIOTROPIUM [Concomitant]
     Active Substance: TIOTROPIUM
     Indication: CHRONIC OBSTRUCTIVE PULMONARY DISEASE
     Route: 055
     Dates: start: 20150403
  9. ACETAMINOPHEN. [Concomitant]
     Active Substance: ACETAMINOPHEN
  10. ZOLPIDEM [Concomitant]
     Active Substance: ZOLPIDEM\ZOLPIDEM TARTRATE
     Indication: PROPHYLAXIS
     Route: 048
     Dates: start: 20150806
  11. FLONASE [Concomitant]
     Active Substance: FLUTICASONE PROPIONATE
     Indication: SEASONAL ALLERGY
     Route: 055
     Dates: start: 20131118
  12. DESONIDE. [Concomitant]
     Active Substance: DESONIDE
     Indication: RASH
     Dosage: 0.05
     Route: 061
     Dates: start: 20160212
  13. VICODIN [Concomitant]
     Active Substance: ACETAMINOPHEN\HYDROCODONE BITARTRATE
     Indication: PAIN
     Dosage: 7.5/325MG ()7.5MG,Q6H
     Route: 048
     Dates: start: 20150806
  14. SYNTHROID [Concomitant]
     Active Substance: LEVOTHYROXINE SODIUM
     Indication: HYPOTHYROIDISM
     Route: 048
     Dates: start: 20131118
  15. FISH OIL [Concomitant]
     Active Substance: FISH OIL
     Indication: SUPPLEMENTATION THERAPY
     Dosage: ONE TABLET/CAPSULES
     Route: 048
     Dates: start: 2013
  16. LOMOTIL [Concomitant]
     Active Substance: ATROPINE SULFATE\DIPHENOXYLATE HYDROCHLORIDE
     Indication: DIARRHOEA
     Dosage: 2.5/0.025MG (2.5 MG, Q6H)
     Route: 048
     Dates: start: 20151223
  17. BENADRYL [Concomitant]
     Active Substance: DIPHENHYDRAMINE HYDROCHLORIDE
     Route: 042
     Dates: start: 20151124, end: 20160303
  18. BLINDED THERAPY [Suspect]
     Active Substance: INVESTIGATIONAL PRODUCT
     Route: 042
     Dates: start: 20151203, end: 20160204
  19. FIBER [Concomitant]
     Active Substance: PSYLLIUM HUSK
     Indication: SUPPLEMENTATION THERAPY
     Dosage: 2 TABLETS/CAPSULES (TAB/CAP)
     Route: 048
     Dates: start: 2013
  20. OMEPRAZOLE. [Concomitant]
     Active Substance: OMEPRAZOLE
     Indication: GASTROOESOPHAGEAL REFLUX DISEASE
     Dosage: UNKNOWN/DAILY 5 WEEK
     Route: 048
     Dates: start: 20150504
  21. FLUTICASONE [Concomitant]
     Active Substance: FLUTICASONE\FLUTICASONE PROPIONATE
  22. HYDROCODONE [Concomitant]
     Active Substance: HYDROCODONE
  23. OLOPATADINE [Concomitant]
     Active Substance: OLOPATADINE
     Indication: SEASONAL ALLERGY
     Dosage: 1 DROP (1 DOSAGE FORMS, DAILY 5/WEEK)
     Route: 047
     Dates: start: 20131118
  24. VITAMIN D3 [Concomitant]
     Active Substance: CHOLECALCIFEROL
     Indication: SUPPLEMENTATION THERAPY
     Dosage: DOSE:1000 UNIT(S)
     Route: 048
     Dates: start: 2013
  25. IMODIUM [Concomitant]
     Active Substance: LOPERAMIDE HYDROCHLORIDE
     Indication: DIARRHOEA
     Dosage: 8 MG (2 MG, Q6H)
     Route: 048
     Dates: start: 20151217
  26. COMPAZINE [Concomitant]
     Active Substance: PROCHLORPERAZINE MALEATE
     Indication: PROPHYLACTIC CHEMOTHERAPY
  27. DOCETAXEL. [Suspect]
     Active Substance: DOCETAXEL
     Route: 042
     Dates: start: 20151124, end: 20160303
  28. VICODIN [Concomitant]
     Active Substance: ACETAMINOPHEN\HYDROCODONE BITARTRATE
     Indication: PROPHYLAXIS
     Dosage: 7.5/325MG ()7.5MG,Q6H
     Route: 048
     Dates: start: 20150806
  29. ADVAIR HFA [Concomitant]
     Active Substance: FLUTICASONE PROPIONATE\SALMETEROL XINAFOATE
     Indication: CHRONIC OBSTRUCTIVE PULMONARY DISEASE
     Dosage: 230/21 MG (230 MG, BID)
     Route: 055
     Dates: start: 20150504

REACTIONS (1)
  - Metapneumovirus infection [Recovered/Resolved]

NARRATIVE: CASE EVENT DATE: 20160310
